FAERS Safety Report 11143261 (Version 1)
Quarter: 2015Q2

REPORT INFORMATION
  Report Type: Spontaneous
  Country: US (occurrence: US)
  Receive Date: 20150526
  Receipt Date: 20150526
  Transmission Date: 20150821
  Serious: No
  Sender: FDA-Public Use
  Company Number: US-NOVEN PHARMACEUTICALS, INC.-US2015000195

PATIENT
  Age: 54 Year
  Sex: Female

DRUGS (8)
  1. FLUDROCORTISONE [Concomitant]
     Active Substance: FLUDROCORTISONE
  2. SUCRALFATE. [Concomitant]
     Active Substance: SUCRALFATE
  3. MINIVELLE [Suspect]
     Active Substance: ESTRADIOL
     Indication: MENOPAUSE
     Dosage: USING 0.0375 MG AND 0.05 MG TOGETHER BY CUTTING INTO HALF
     Route: 062
     Dates: start: 201302
  4. TYROSINE [Concomitant]
     Active Substance: TYROSINE
  5. CYTOMEL [Concomitant]
     Active Substance: LIOTHYRONINE SODIUM
  6. DHEA [Concomitant]
     Active Substance: DEHYDROEPIANDROSTERONE-3-SULFATE SODIUM
  7. CORTEF [Concomitant]
     Active Substance: HYDROCORTISONE
  8. PREDNISOLONE. [Concomitant]
     Active Substance: PREDNISOLONE

REACTIONS (3)
  - No adverse event [Unknown]
  - Drug prescribing error [Unknown]
  - Wrong technique in drug usage process [Unknown]

NARRATIVE: CASE EVENT DATE: 2013
